FAERS Safety Report 5392096-8 (Version None)
Quarter: 2007Q3

REPORT INFORMATION
  Report Type: 
  Country: None (occurrence: None)
  Receive Date: 20070720
  Receipt Date: 20070713
  Transmission Date: 20080115
  Serious: Yes (Hospitalization)
  Sender: FDA-Public Use
  Company Number: JP-BAYER-200713961GDS

PATIENT
  Age: 91 Year
  Sex: Female

DRUGS (1)
  1. CIPROXAN IV [Suspect]
     Indication: PNEUMONIA
     Route: 042

REACTIONS (2)
  - SKIN NECROSIS [None]
  - SKIN ULCER [None]
